FAERS Safety Report 9247847 (Version 2)
Quarter: 2013Q2

REPORT INFORMATION
  Report Type: Spontaneous
  Country: IT (occurrence: IT)
  Receive Date: 20130423
  Receipt Date: 20130520
  Transmission Date: 20140414
  Serious: Yes (Life-Threatening, Hospitalization)
  Sender: FDA-Public Use
  Company Number: IT-BRISTOL-MYERS SQUIBB COMPANY-18786699

PATIENT
  Age: 82 Year
  Sex: Female
  Weight: 50 kg

DRUGS (4)
  1. COUMADIN TABS 5 MG [Suspect]
     Indication: ATRIAL FIBRILLATION
     Dosage: 1DF:1 UNITS
     Route: 048
     Dates: start: 20100101, end: 20130322
  2. ISOPTIN [Concomitant]
     Dosage: 80 MG TABLETS?1DF:1 UNITS
     Route: 048
  3. NORVASC [Concomitant]
     Dosage: 5 MG TABLETS?1DF:1 UNITS
     Route: 048
  4. TRIATEC [Concomitant]
     Dosage: 1DF: 1 UNITS?5 MG TABLETS
     Route: 048

REACTIONS (3)
  - Subendocardial ischaemia [Recovering/Resolving]
  - Anaemia [Recovering/Resolving]
  - Intestinal haemorrhage [Recovering/Resolving]
